FAERS Safety Report 6758408-5 (Version None)
Quarter: 2010Q2

REPORT INFORMATION
  Report Type: 
  Country: None (occurrence: None)
  Receive Date: 20100607
  Receipt Date: 20100526
  Transmission Date: 20101027
  Serious: Yes (Hospitalization)
  Sender: FDA-Public Use
  Company Number: US-ROCHE-682660

PATIENT
  Sex: Female
  Weight: 63.2 kg

DRUGS (2)
  1. BEVACIZUMAB [Suspect]
     Indication: GLIOBLASTOMA MULTIFORME
     Dosage: LAST DOSE ADMINISTERED ON 12 JANUARY 2010.
     Route: 042
     Dates: start: 20090824, end: 20100126
  2. TEMOZOLOMIDE [Suspect]
     Indication: GLIOBLASTOMA MULTIFORME
     Dosage: LAST DOSE ADMINISTERED ON 3 JANUARY 2010
     Route: 048
     Dates: start: 20090824, end: 20100126

REACTIONS (4)
  - APPENDICITIS [None]
  - ENTERITIS INFECTIOUS [None]
  - HYDRONEPHROSIS [None]
  - OESOPHAGEAL ULCER [None]
